FAERS Safety Report 5463891-1 (Version None)
Quarter: 2007Q3

REPORT INFORMATION
  Report Type: 
  Country: None (occurrence: None)
  Receive Date: 20070814
  Receipt Date: 20061012
  Transmission Date: 20080115
  Serious: Yes (Hospitalization)
  Sender: FDA-Public Use
  Company Number: MEDI-0005027

PATIENT
  Age: 24 Month
  Sex: Female

DRUGS (1)
  1. SYNAGIS [Suspect]
     Dosage: 1 IN 1 M
     Dates: start: 20040101, end: 20050101

REACTIONS (1)
  - RESPIRATORY SYNCYTIAL VIRUS INFECTION [None]
